FAERS Safety Report 5208956-4 (Version None)
Quarter: 2007Q1

REPORT INFORMATION
  Report Type: 
  Country: None (occurrence: None)
  Receive Date: 20070116
  Receipt Date: 20070104
  Transmission Date: 20070707
  Serious: Yes (Other)
  Sender: FDA-Public Use
  Company Number: US-AVENTIS-200710156US

PATIENT

DRUGS (2)
  1. LASIX [Suspect]
     Dosage: DOSE: UNK
     Route: 042
  2. DOBUTAMINE HYDROCHLORIDE AND 5% DEXTROSE [Suspect]
     Route: 042

REACTIONS (2)
  - BODY TEMPERATURE INCREASED [None]
  - RESPIRATORY DISTRESS [None]
